FAERS Safety Report 4313657-0 (Version None)
Quarter: 2004Q1

REPORT INFORMATION
  Report Type: 
  Country: None (occurrence: None)
  Receive Date: 20040308
  Receipt Date: 20030820
  Transmission Date: 20041129
  Serious: Yes (Death)
  Sender: FDA-Public Use
  Company Number: PHBS2003JP08902

PATIENT
  Age: 1 Day
  Sex: Male

DRUGS (1)
  1. VOLTAREN [Suspect]
     Route: 064

REACTIONS (9)
  - ASCITES [None]
  - CARDIAC TAMPONADE [None]
  - DUCTUS ARTERIOSUS STENOSIS FOETAL [None]
  - MATERNAL DRUGS AFFECTING FOETUS [None]
  - OEDEMA NEONATAL [None]
  - PLEURAL EFFUSION [None]
  - PREMATURE BABY [None]
  - PREMATURE LABOUR [None]
  - VASOCONSTRICTION [None]
